FAERS Safety Report 8058558-X (Version None)
Quarter: 2012Q1

REPORT INFORMATION
  Report Type: 
  Country: None (occurrence: None)
  Receive Date: 20120119
  Receipt Date: 20120119
  Transmission Date: 20120608
  Serious: Yes (Disabling)
  Sender: FDA-Public Use
  Company Number: None

PATIENT
  Age: 54 Year
  Sex: Female
  Weight: 69.4003 kg

DRUGS (1)
  1. MEDROL [Suspect]
     Indication: URTICARIA
     Dosage: 1 ONCE A DAY ORAL
     Route: 048
     Dates: start: 20111118, end: 20111125

REACTIONS (7)
  - PAIN [None]
  - GAIT DISTURBANCE [None]
  - ARTHRALGIA [None]
  - JOINT SWELLING [None]
  - MOVEMENT DISORDER [None]
  - MUSCLE DISORDER [None]
  - MUSCULAR WEAKNESS [None]
